FAERS Safety Report 18334633 (Version 1)
Quarter: 2020Q4

REPORT INFORMATION
  Report Type: Spontaneous
  Country: US (occurrence: US)
  Receive Date: 20201001
  Receipt Date: 20201001
  Transmission Date: 20210113
  Serious: No
  Sender: FDA-Public Use
  Company Number: None

PATIENT
  Age: 73 Year
  Sex: Male
  Weight: 102 kg

DRUGS (1)
  1. REMDESIVIR FOR INJECTION [Suspect]
     Active Substance: REMDESIVIR
     Indication: SARS-COV-2 TEST POSITIVE
     Route: 041
     Dates: start: 20200925, end: 20200929

REACTIONS (3)
  - Product preparation error [None]
  - Wrong schedule [None]
  - Intercepted product administration error [None]

NARRATIVE: CASE EVENT DATE: 20200929
